FAERS Safety Report 7268990-X (Version None)
Quarter: 2011Q1

REPORT INFORMATION
  Report Type: 
  Country: None (occurrence: None)
  Receive Date: 20110201
  Receipt Date: 20110118
  Transmission Date: 20110831
  Serious: Yes (Hospitalization)
  Sender: FDA-Public Use
  Company Number: US-ELI_LILLY_AND_COMPANY-US201008004463

PATIENT
  Sex: Female
  Weight: 61.2 kg

DRUGS (18)
  1. SIMVASTATIN [Concomitant]
     Dosage: UNK, UNKNOWN
     Route: 065
  2. FORTEO [Suspect]
     Indication: OSTEOPOROSIS
     Dosage: 20 UG, DAILY (1/D)
     Route: 058
     Dates: start: 20090430
  3. REVEX [Concomitant]
     Dosage: UNK, DAILY (1/D)
     Route: 065
  4. PLAVIX [Concomitant]
     Dosage: UNK, UNKNOWN
     Route: 065
  5. MOBIC [Concomitant]
     Dosage: 15 MG, DAILY (1/D)
     Route: 065
  6. LEVOXYL [Concomitant]
     Dosage: 75 UG, 6 DAYS A WEEK
     Route: 065
  7. PROTONIX [Concomitant]
     Dosage: 40 MG, DAILY (1/D)
     Route: 065
  8. ALDACTONE [Concomitant]
     Dosage: 50 MG, 1/2 DAY
     Route: 065
  9. ASPIRIN [Concomitant]
     Dosage: 81 MG, DAILY (1/D)
     Route: 065
  10. ZOSTRIX [Concomitant]
     Dosage: UNK, UNKNOWN
     Route: 065
  11. MULTI-VITAMINS [Concomitant]
     Dosage: UNK, UNKNOWN
     Route: 065
  12. FISH OIL [Concomitant]
     Dosage: 1000 MG, DAILY (1/D)
     Route: 065
  13. XALATAN [Concomitant]
     Dosage: UNK, UNKNOWN
     Route: 065
  14. FORTEO [Suspect]
     Dosage: 20 UG, DAILY (1/D)
     Route: 058
  15. VITAMIN E [Concomitant]
     Dosage: 400 IU, DAILY (1/D)
     Route: 065
  16. DIOVAN [Concomitant]
     Dosage: 220 MG, 1/2 DAY
     Route: 065
  17. CALCIUM [Concomitant]
     Dosage: 600, 2DAY
     Route: 065
  18. CITRUCEL [Concomitant]
     Dosage: UNK, UNKNOWN
     Route: 065

REACTIONS (3)
  - CHOLELITHIASIS [None]
  - INJECTION SITE HAEMATOMA [None]
  - INJECTION SITE PAIN [None]
